FAERS Safety Report 23422912 (Version 1)
Quarter: 2024Q1

REPORT INFORMATION
  Report Type: Spontaneous
  Country: CA (occurrence: CA)
  Receive Date: 20240119
  Receipt Date: 20240119
  Transmission Date: 20240410
  Serious: Yes (Hospitalization)
  Sender: FDA-Public Use
  Company Number: CA-FreseniusKabi-FK202400827

PATIENT
  Age: 61 Year
  Sex: Female

DRUGS (1)
  1. MIDAZOLAM HYDROCHLORIDE [Suspect]
     Active Substance: MIDAZOLAM HYDROCHLORIDE
     Indication: Agitation
     Dosage: FREQUENCY: ONCE?DOSAGE FORM: LIQUID INTRAMUSCULAR
     Route: 030

REACTIONS (2)
  - Sleep apnoea syndrome [Recovered/Resolved]
  - Sedation complication [Recovered/Resolved]
